FAERS Safety Report 4369634-7 (Version None)
Quarter: 2004Q2

REPORT INFORMATION
  Report Type: 
  Country: None (occurrence: None)
  Receive Date: 20040528
  Receipt Date: 20040518
  Transmission Date: 20050107
  Serious: No
  Sender: FDA-Public Use
  Company Number: 2004UW10479

PATIENT
  Age: 80 Year
  Sex: Male
  Weight: 87.0906 kg

DRUGS (8)
  1. CRESTOR [Suspect]
     Indication: BLOOD CHOLESTEROL INCREASED
     Dosage: 10 MG PO
     Route: 048
     Dates: start: 20040101
  2. DYNACIRC [Concomitant]
  3. ANTIVERT [Concomitant]
  4. RESTORIL [Concomitant]
  5. XANAX [Concomitant]
  6. PLAVIX [Concomitant]
  7. FLONASE [Concomitant]
  8. ASPIRIN [Concomitant]

REACTIONS (4)
  - CEREBROVASCULAR ACCIDENT [None]
  - CHROMATURIA [None]
  - MUSCLE CRAMP [None]
  - MUSCLE SPASMS [None]
